FAERS Safety Report 4667239-1 (Version None)
Quarter: 2005Q2

REPORT INFORMATION
  Report Type: 
  Country: None (occurrence: None)
  Receive Date: 20050520
  Receipt Date: 20050329
  Transmission Date: 20051028
  Serious: No
  Sender: FDA-Public Use
  Company Number: US-BRISTOL-MYERS SQUIBB COMPANY-12914073

PATIENT
  Age: 63 Year
  Sex: Female
  Weight: 86 kg

DRUGS (3)
  1. SINEMET CR [Suspect]
     Indication: PARKINSON'S DISEASE
  2. LOVASTATIN [Concomitant]
  3. TOPRAL [Concomitant]

REACTIONS (1)
  - TREMOR [None]
